FAERS Safety Report 10670116 (Version 2)
Quarter: 2015Q2

REPORT INFORMATION
  Report Type: Report from Study
  Country: DE (occurrence: DE)
  Receive Date: 20141223
  Receipt Date: 20150618
  Transmission Date: 20150821
  Serious: Yes (Hospitalization, Disabling, Other)
  Sender: FDA-Public Use
  Company Number: DE-ROCHE-1512837

PATIENT
  Age: 69 Year
  Sex: Male
  Weight: 64 kg

DRUGS (4)
  1. RANIBIZUMAB [Suspect]
     Active Substance: RANIBIZUMAB
     Indication: MACULAR OEDEMA
     Route: 050
     Dates: start: 20141119, end: 20141119
  2. RANIBIZUMAB [Suspect]
     Active Substance: RANIBIZUMAB
     Indication: VISUAL ACUITY REDUCED
  3. RANIBIZUMAB [Suspect]
     Active Substance: RANIBIZUMAB
     Indication: RETINAL HAEMORRHAGE
  4. RANIBIZUMAB [Suspect]
     Active Substance: RANIBIZUMAB
     Indication: VISUAL IMPAIRMENT
     Dosage: 10 MG/ML.
     Route: 050
     Dates: start: 20140728, end: 20140728

REACTIONS (4)
  - Retinal artery occlusion [Recovered/Resolved with Sequelae]
  - Visual acuity reduced [Unknown]
  - Retinal vein occlusion [Not Recovered/Not Resolved]
  - Retinal haemorrhage [Unknown]

NARRATIVE: CASE EVENT DATE: 201409
